FAERS Safety Report 7808013-4 (Version None)
Quarter: 2011Q4

REPORT INFORMATION
  Report Type: 
  Country: None (occurrence: None)
  Receive Date: 20111011
  Receipt Date: 20111011
  Transmission Date: 20120403
  Serious: Yes (Life-Threatening, Other)
  Sender: FDA-Public Use
  Company Number: None

PATIENT
  Sex: Female

DRUGS (1)
  1. NYQUIL LIQUID MEDICIN [Suspect]

REACTIONS (2)
  - DRUG ABUSE [None]
  - DRUG DEPENDENCE [None]
